FAERS Safety Report 24934015 (Version 1)
Quarter: 2025Q1

REPORT INFORMATION
  Report Type: Report from Study
  Country: US (occurrence: US)
  Receive Date: 20250206
  Receipt Date: 20250206
  Transmission Date: 20250409
  Serious: Yes (Other)
  Sender: EXELIXIS
  Company Number: US-EXELIXIS-CABO-24077054

PATIENT
  Sex: Male

DRUGS (9)
  1. CABOMETYX [Suspect]
     Active Substance: CABOZANTINIB S-MALATE
     Indication: Renal cell carcinoma
     Dosage: 60 MG, QD
     Dates: start: 20240412
  2. SPIRONOLACTONE [Concomitant]
     Active Substance: SPIRONOLACTONE
  3. LOSARTAN [Concomitant]
     Active Substance: LOSARTAN
  4. LEVOTHYROXINE [Concomitant]
     Active Substance: LEVOTHYROXINE
  5. METOPROLOL [Concomitant]
     Active Substance: METOPROLOL
  6. ROSUVASTATIN [Concomitant]
     Active Substance: ROSUVASTATIN
  7. ALLOPURINOL [Concomitant]
     Active Substance: ALLOPURINOL
  8. AMLODIPINE [Concomitant]
     Active Substance: AMLODIPINE BESYLATE
  9. ZOLPIDEM [Concomitant]
     Active Substance: ZOLPIDEM TARTRATE

REACTIONS (9)
  - Pancreatitis [Unknown]
  - Cholecystitis [Unknown]
  - Blood pressure systolic increased [Unknown]
  - Abdominal pain upper [Unknown]
  - Diarrhoea [Recovered/Resolved]
  - Constipation [Recovered/Resolved]
  - Somnolence [Unknown]
  - Heart rate abnormal [Unknown]
  - Hypophagia [Unknown]
